FAERS Safety Report 6131832-X (Version None)
Quarter: 2009Q1

REPORT INFORMATION
  Report Type: 
  Country: None (occurrence: None)
  Receive Date: 20090323
  Receipt Date: 20090306
  Transmission Date: 20090719
  Serious: Yes (Hospitalization, Disabling)
  Sender: FDA-Public Use
  Company Number: GXKR2007GB03698

PATIENT
  Age: 52 Year
  Sex: Male
  Weight: 104 kg

DRUGS (6)
  1. MIRTAZAPINE [Suspect]
     Indication: DEPRESSION
     Dosage: 15  MG, ORAL
     Route: 048
     Dates: start: 20070309, end: 20070322
  2. CITALOPRAM HYDROBROMIDE [Concomitant]
  3. CODEINE SUL TAB [Concomitant]
  4. DIAZEPAM [Concomitant]
  5. FLUOXETINE [Concomitant]
  6. ACETAMINOPHEN [Concomitant]

REACTIONS (3)
  - BLOOD CREATINE PHOSPHOKINASE INCREASED [None]
  - MYALGIA [None]
  - SWELLING [None]
